FAERS Safety Report 6914381-8 (Version None)
Quarter: 2010Q3

REPORT INFORMATION
  Report Type: 
  Country: None (occurrence: None)
  Receive Date: 20100809
  Receipt Date: 20100729
  Transmission Date: 20110219
  Serious: Yes (Hospitalization)
  Sender: FDA-Public Use
  Company Number: CH-ASTRAZENECA-2010SE35775

PATIENT
  Age: 79 Year
  Sex: Female
  Weight: 71 kg

DRUGS (19)
  1. METOPROLOL SUCCINATE [Suspect]
     Indication: ESSENTIAL HYPERTENSION
     Route: 048
  2. DIGOXIN [Suspect]
     Indication: ATRIAL FIBRILLATION
     Route: 048
     Dates: start: 20100707, end: 20100719
  3. DIGOXIN [Suspect]
     Indication: ATRIAL FLUTTER
     Route: 048
     Dates: start: 20100707, end: 20100719
  4. CIPROFLOXACIN HCL [Concomitant]
     Indication: URINARY TRACT INFECTION
     Route: 048
  5. PRIMPERAN TAB [Concomitant]
     Indication: NAUSEA
     Route: 048
  6. PRIMPERAN TAB [Concomitant]
     Indication: VOMITING
     Route: 048
  7. PLAVIX [Concomitant]
     Indication: CEREBROVASCULAR ACCIDENT
     Route: 048
     Dates: start: 20050101
  8. LISITRIL [Concomitant]
     Indication: ESSENTIAL HYPERTENSION
     Route: 048
     Dates: end: 20100719
  9. MARCUMAR [Concomitant]
     Indication: PULMONARY EMBOLISM
     Route: 048
     Dates: start: 20100101
  10. BUDENOFALK [Concomitant]
     Indication: COLITIS ULCERATIVE
     Route: 048
  11. ASACOL [Concomitant]
     Indication: COLITIS ULCERATIVE
     Route: 048
  12. TORSEMIDE [Concomitant]
     Indication: ESSENTIAL HYPERTENSION
     Route: 048
  13. ZOLPIDEM [Concomitant]
     Indication: INSOMNIA
     Route: 048
  14. CALCIMAGON D3 [Concomitant]
     Indication: PROPHYLACTIC CHEMOTHERAPY
     Dosage: TWO TIMES A DAY
     Route: 048
  15. ACETAMINOPHEN [Concomitant]
     Indication: PAIN
     Route: 048
  16. NOVALGIN [Concomitant]
     Indication: PAIN
     Route: 048
  17. VENLAFAXINE [Concomitant]
     Route: 048
  18. LEXOTANIL [Concomitant]
     Route: 048
  19. PANTOPRAZOLE [Concomitant]
     Route: 048

REACTIONS (4)
  - ACCIDENTAL OVERDOSE [None]
  - BRADYCARDIA [None]
  - NAUSEA [None]
  - VOMITING [None]
